FAERS Safety Report 7279001-4 (Version None)
Quarter: 2011Q1

REPORT INFORMATION
  Report Type: 
  Country: None (occurrence: None)
  Receive Date: 20110207
  Receipt Date: 20110124
  Transmission Date: 20110831
  Serious: Yes (Other)
  Sender: FDA-Public Use
  Company Number: NL-GENENTECH-313209

PATIENT
  Sex: Male

DRUGS (2)
  1. XOLAIR [Suspect]
     Dosage: 600 MG, Q2W
  2. XOLAIR [Suspect]
     Indication: ASTHMA
     Dosage: 375 MG, Q2W
     Dates: start: 20091201

REACTIONS (4)
  - MOUTH HAEMORRHAGE [None]
  - ECZEMA [None]
  - VOMITING [None]
  - NAUSEA [None]
